FAERS Safety Report 8212077-6 (Version None)
Quarter: 2012Q1

REPORT INFORMATION
  Report Type: 
  Country: None (occurrence: None)
  Receive Date: 20120315
  Receipt Date: 20120306
  Transmission Date: 20120608
  Serious: Yes (Other)
  Sender: FDA-Public Use
  Company Number: PHEH2012US004529

PATIENT
  Sex: Female

DRUGS (9)
  1. CLONAZEPAM [Concomitant]
     Dosage: 0.5 MG, EVERY 12 HOURS
     Route: 048
  2. SERTRALINE HYDROCHLORIDE [Concomitant]
     Dosage: 50 MG,
     Route: 048
  3. VORICONAZOLE [Concomitant]
     Dosage: 200 MG, EVERY 12 HOURS
  4. TASIGNA [Suspect]
     Indication: CHRONIC MYELOID LEUKAEMIA
     Dosage: UNK UKN, UNK
     Dates: start: 20080101, end: 20110701
  5. AMLODIPINE [Concomitant]
     Dosage: 10 MG,
     Route: 048
  6. ACYCLOVIR [Concomitant]
     Dosage: 400 MG, EVERY 12 HOURS
     Route: 048
  7. HYDROXYUREA [Concomitant]
     Dosage: 500 MG,
     Route: 048
  8. LEVOTHYROXINE SODIUM [Concomitant]
     Dosage: 100 MG,
     Route: 048
  9. PANTOPRAZOLE [Concomitant]
     Dosage: 40 MG,
     Route: 048

REACTIONS (3)
  - DRUG INEFFECTIVE [None]
  - BLAST CRISIS IN MYELOGENOUS LEUKAEMIA [None]
  - EPISTAXIS [None]
